FAERS Safety Report 26175688 (Version 1)
Quarter: 2025Q4

REPORT INFORMATION
  Report Type: Spontaneous
  Country: US (occurrence: US)
  Receive Date: 20251218
  Receipt Date: 20251218
  Transmission Date: 20260117
  Serious: Yes (Other)
  Sender: AMGEN
  Company Number: US-AMGEN-USASP2025248735

PATIENT
  Age: 41 Year
  Sex: Female

DRUGS (2)
  1. PREDNISONE [Suspect]
     Active Substance: PREDNISONE
     Indication: Dermatomyositis
     Dosage: 1 MILLIGRAM/KILOGRAM
     Route: 065
  2. RITUXIMAB [Suspect]
     Active Substance: RITUXIMAB
     Indication: Dermatomyositis
     Dosage: 1000 MILLIGRAM, Q2WK
     Route: 065

REACTIONS (3)
  - Dermatomyositis [Unknown]
  - Drug ineffective for unapproved indication [Unknown]
  - Off label use [Unknown]
